FAERS Safety Report 4459468-7 (Version None)
Quarter: 2004Q3

REPORT INFORMATION
  Report Type: 
  Country: None (occurrence: None)
  Receive Date: 20040927
  Receipt Date: 20040916
  Transmission Date: 20050211
  Serious: Yes (Life-Threatening, Hospitalization, Other)
  Sender: FDA-Public Use
  Company Number: FR-ABBOTT-04P-056-0273672-00

PATIENT
  Age: 78 Year
  Sex: Female
  Weight: 50 kg

DRUGS (5)
  1. FENOFIBRATE [Suspect]
     Indication: HYPERCHOLESTEROLAEMIA
     Route: 048
     Dates: end: 20040812
  2. SILYMARIN [Concomitant]
     Indication: DRUG USE FOR UNKNOWN INDICATION
     Dates: end: 20040812
  3. CANDESARTAN CILEXETIL [Concomitant]
     Indication: DRUG USE FOR UNKNOWN INDICATION
     Dates: end: 20040812
  4. COLESTYRAMINE [Concomitant]
     Indication: DRUG USE FOR UNKNOWN INDICATION
  5. OXYBUTYNIN [Concomitant]
     Indication: DRUG USE FOR UNKNOWN INDICATION

REACTIONS (14)
  - ASTERIXIS [None]
  - BRAIN CONTUSION [None]
  - EOSINOPHILIA [None]
  - FALL [None]
  - HEADACHE [None]
  - HEPATIC FAILURE [None]
  - HEPATITIS FULMINANT [None]
  - HYPONATRAEMIA [None]
  - HYPOTENSION [None]
  - OPEN WOUND [None]
  - SKIN INJURY [None]
  - SOMNOLENCE [None]
  - THROMBOCYTOPENIA [None]
  - VOMITING [None]
